FAERS Safety Report 10482340 (Version 2)
Quarter: 2014Q4

REPORT INFORMATION
  Report Type: Report from Study
  Country: AR (occurrence: AR)
  Receive Date: 20140929
  Receipt Date: 20141126
  Transmission Date: 20150528
  Serious: Yes (Other)
  Sender: FDA-Public Use
  Company Number: AR-US-EMD SERONO, INC.-7322853

PATIENT
  Age: 44 Year
  Sex: Female

DRUGS (3)
  1. REBIF [Suspect]
     Active Substance: INTERFERON BETA-1A
     Indication: MULTIPLE SCLEROSIS
     Dates: start: 20100303, end: 20120514
  2. REBIF [Suspect]
     Active Substance: INTERFERON BETA-1A
     Dates: start: 20120514
  3. REBIF [Suspect]
     Active Substance: INTERFERON BETA-1A
     Dates: start: 20140819, end: 201410

REACTIONS (2)
  - Brain neoplasm malignant [Recovered/Resolved]
  - Lung neoplasm malignant [Recovered/Resolved]

NARRATIVE: CASE EVENT DATE: 201304
